FAERS Safety Report 14758949 (Version 4)
Quarter: 2018Q2

REPORT INFORMATION
  Report Type: Spontaneous
  Country: US (occurrence: US)
  Receive Date: 20180413
  Receipt Date: 20180605
  Transmission Date: 20180711
  Serious: Yes (Hospitalization)
  Sender: FDA-Public Use
  Company Number: US-FRESENIUS MEDICAL CARE RENAL THERAPIES GROUP-FMC-1803-000604

PATIENT
  Sex: Female

DRUGS (12)
  1. CLONIDINE. [Concomitant]
     Active Substance: CLONIDINE
  2. PRAVASTATIN. [Concomitant]
     Active Substance: PRAVASTATIN
  3. CALCIUM ACETATE. [Concomitant]
     Active Substance: CALCIUM ACETATE
  4. ASPIRIN. [Concomitant]
     Active Substance: ASPIRIN
  5. GABAPENTIN. [Concomitant]
     Active Substance: GABAPENTIN
  6. VITAMIN D [Concomitant]
     Active Substance: CHOLECALCIFEROL
  7. LASIX [Concomitant]
     Active Substance: FUROSEMIDE
  8. METOPROLOL TARTARATE [Concomitant]
     Active Substance: METOPROLOL TARTRATE
  9. XANAX [Concomitant]
     Active Substance: ALPRAZOLAM
  10. LEVOTHYROXINE. [Concomitant]
     Active Substance: LEVOTHYROXINE
  11. DELFLEX WITH DEXTROSE 4.25% LOW MAGNESIUM LOW CALCIUM [Suspect]
     Active Substance: CALCIUM CHLORIDE\DEXTROSE\MAGNESIUM CHLORIDE\SODIUM CHLORIDE\SODIUM LACTATE
     Indication: END STAGE RENAL DISEASE
     Route: 033
  12. AMLODIPINE [Concomitant]
     Active Substance: AMLODIPINE BESYLATE

REACTIONS (1)
  - Abdominal distension [Unknown]
